FAERS Safety Report 25704183 (Version 1)
Quarter: 2025Q3

REPORT INFORMATION
  Report Type: Spontaneous
  Country: EU (occurrence: EU)
  Receive Date: 20250820
  Receipt Date: 20250820
  Transmission Date: 20251021
  Serious: Yes (Other)
  Sender: BAXTER
  Company Number: None

PATIENT
  Age: 25 Year
  Sex: Female

DRUGS (4)
  1. IFOSFAMIDE [Suspect]
     Active Substance: IFOSFAMIDE
     Indication: Malignant fibrous histiocytoma
     Route: 065
  2. DOXORUBICIN [Suspect]
     Active Substance: DOXORUBICIN
     Indication: Malignant fibrous histiocytoma
     Route: 065
  3. DOCETAXEL [Suspect]
     Active Substance: DOCETAXEL
     Indication: Malignant fibrous histiocytoma
     Route: 065
  4. GEMCITABINE [Suspect]
     Active Substance: GEMCITABINE
     Indication: Malignant fibrous histiocytoma
     Route: 065

REACTIONS (8)
  - Metastases to lung [Unknown]
  - Disease progression [Unknown]
  - Haematotoxicity [Unknown]
  - Neutropenia [Unknown]
  - Vertebral column mass [Unknown]
  - Paresis [Unknown]
  - Pain [Unknown]
  - Anaemia [Unknown]
